FAERS Safety Report 14735198 (Version 1)
Quarter: 2018Q2

REPORT INFORMATION
  Report Type: Spontaneous
  Country: US (occurrence: US)
  Receive Date: 20180409
  Receipt Date: 20180409
  Transmission Date: 20180711
  Serious: No
  Sender: FDA-Public Use
  Company Number: US-GLAXOSMITHKLINE-US2018054981

PATIENT
  Age: 41 Year
  Sex: Female

DRUGS (1)
  1. ABREVA [Suspect]
     Active Substance: DOCOSANOL
     Indication: ORAL HERPES
     Dosage: UNK
     Dates: start: 20180328, end: 20180328

REACTIONS (4)
  - Oral discomfort [Unknown]
  - Lip erythema [Unknown]
  - Chapped lips [Unknown]
  - Cheilitis [Unknown]

NARRATIVE: CASE EVENT DATE: 20180328
